FAERS Safety Report 22155722 (Version 1)
Quarter: 2023Q1

REPORT INFORMATION
  Report Type: Spontaneous
  Country: US (occurrence: US)
  Receive Date: 20230330
  Receipt Date: 20230330
  Transmission Date: 20230418
  Serious: No
  Sender: FDA-Public Use
  Company Number: US-CSLP-70508994080-V11772031-27

PATIENT
  Age: 28 Year
  Sex: Male

DRUGS (2)
  1. ANTICOAGULANT SODIUM CITRATE [Suspect]
     Active Substance: SODIUM CITRATE
     Indication: Anticoagulant therapy
     Route: 050
     Dates: start: 20230319, end: 20230319
  2. SALINE [Concomitant]
     Active Substance: SODIUM CHLORIDE
     Indication: Product used for unknown indication
     Route: 065
     Dates: start: 20230319, end: 20230319

REACTIONS (8)
  - Thirst [Recovered/Resolved]
  - Muscle spasms [Recovered/Resolved]
  - Pallor [Recovered/Resolved]
  - Nausea [Recovered/Resolved]
  - Hypoaesthesia [Recovered/Resolved]
  - Paraesthesia [Recovered/Resolved]
  - Limb discomfort [Recovered/Resolved]
  - Pain [Recovered/Resolved]

NARRATIVE: CASE EVENT DATE: 20230319
